FAERS Safety Report 8550458-1 (Version None)
Quarter: 2012Q3

REPORT INFORMATION
  Report Type: 
  Country: None (occurrence: None)
  Receive Date: 20120730
  Receipt Date: 20120720
  Transmission Date: 20120928
  Serious: Yes (Death)
  Sender: FDA-Public Use
  Company Number: JP-BRISTOL-MYERS SQUIBB COMPANY-16781932

PATIENT

DRUGS (2)
  1. PARAPLATIN AQ [Suspect]
     Indication: LUNG NEOPLASM MALIGNANT
  2. TAXOL [Suspect]
     Indication: LUNG NEOPLASM MALIGNANT

REACTIONS (1)
  - SUDDEN DEATH [None]
